FAERS Safety Report 9870087 (Version 2)
Quarter: 2014Q1

REPORT INFORMATION
  Report Type: Spontaneous
  Country: FR (occurrence: FR)
  Receive Date: 20140205
  Receipt Date: 20140205
  Transmission Date: 20141002
  Serious: Yes (Hospitalization)
  Sender: FDA-Public Use
  Company Number: FR-SANOFI-AVENTIS-2013SA064828

PATIENT
  Age: 80 Year
  Sex: Female

DRUGS (7)
  1. CORDARONE [Suspect]
     Indication: ATRIAL FIBRILLATION
     Dosage: FREQUENCY : DAILY  5D/7D?DOSE: 1DF
     Route: 048
     Dates: end: 20130503
  2. KARDEGIC [Suspect]
     Indication: PRODUCT USED FOR UNKNOWN INDICATION
     Route: 048
  3. FUROSEMIDE [Suspect]
     Indication: HYPERTENSION
     Dosage: STRENGTH: 20MG
     Route: 048
     Dates: end: 20130522
  4. FUROSEMIDE [Suspect]
     Indication: HYPERTENSION
     Dosage: STRENGTH : 40 MG
     Route: 048
  5. KALEORID [Suspect]
     Indication: HYPOKALAEMIA
     Dosage: STRENGTH: 600 MG
     Route: 048
     Dates: end: 20130522
  6. DETENSIEL [Suspect]
     Indication: HYPERTENSION
     Route: 048
     Dates: end: 20130504
  7. BETA BLOCKING AGENTS [Concomitant]
     Indication: ATRIAL FIBRILLATION
     Route: 048
     Dates: end: 20130504

REACTIONS (2)
  - Hepatitis [Recovered/Resolved]
  - Malaise [Recovered/Resolved]
